FAERS Safety Report 19403444 (Version 1)
Quarter: 2021Q2

REPORT INFORMATION
  Report Type: Spontaneous
  Country: US (occurrence: US)
  Receive Date: 20210610
  Receipt Date: 20210610
  Transmission Date: 20210717
  Serious: Yes (Hospitalization)
  Sender: FDA-Public Use
  Company Number: None

PATIENT
  Age: 24 Year
  Sex: Female
  Weight: 57.15 kg

DRUGS (2)
  1. BOTOX [Suspect]
     Active Substance: ONABOTULINUMTOXINA
     Indication: SKIN COSMETIC PROCEDURE
     Dates: start: 20210603, end: 20210603
  2. MITRAZAPINE?GENERIC FOR REMERON [Concomitant]
     Active Substance: MIRTAZAPINE

REACTIONS (6)
  - Diarrhoea [None]
  - Abdominal pain upper [None]
  - Dizziness [None]
  - Chest pain [None]
  - Troponin increased [None]
  - Dyspnoea [None]

NARRATIVE: CASE EVENT DATE: 20210610
